FAERS Safety Report 21621146 (Version 2)
Quarter: 2022Q4

REPORT INFORMATION
  Report Type: Report from Study
  Country: US (occurrence: US)
  Receive Date: 20221121
  Receipt Date: 20221125
  Transmission Date: 20230113
  Serious: Yes (Hospitalization, Other)
  Sender: FDA-Public Use
  Company Number: US-TAKEDA-2021TUS072783

PATIENT
  Age: 68 Year
  Sex: Female
  Weight: 123 kg

DRUGS (2)
  1. BRIGATINIB [Suspect]
     Active Substance: BRIGATINIB
     Indication: Lung neoplasm malignant
     Dosage: UNK
     Route: 065
  2. BRIGATINIB [Suspect]
     Active Substance: BRIGATINIB
     Dosage: 180 MILLIGRAM, QD
     Route: 048
     Dates: start: 20211019

REACTIONS (11)
  - COVID-19 [Unknown]
  - Neuropathy peripheral [Unknown]
  - Depression [Unknown]
  - Dehydration [Unknown]
  - Dry skin [Unknown]
  - Muscle spasms [Unknown]
  - Injury [Unknown]
  - Skin laceration [Unknown]
  - Skin atrophy [Unknown]
  - Arthritis [Not Recovered/Not Resolved]
  - Gait disturbance [Unknown]

NARRATIVE: CASE EVENT DATE: 20220513
